FAERS Safety Report 24814706 (Version 1)
Quarter: 2025Q1

REPORT INFORMATION
  Report Type: Spontaneous
  Country: US (occurrence: None)
  Receive Date: 20250106
  Receipt Date: 20250106
  Transmission Date: 20250409
  Serious: Yes (Other)
  Sender: FDA-CTU
  Company Number: None

PATIENT
  Age: 69 Year
  Sex: Male
  Weight: 81 kg

DRUGS (34)
  1. GABAPENTIN [Suspect]
     Active Substance: GABAPENTIN
     Indication: Gastrointestinal pain
     Dosage: OTHER QUANTITY : 1 CAPSULE(S);?FREQUENCY : 3 TIMES A DAY;?
     Route: 048
     Dates: start: 20241226, end: 20250101
  2. RITUXIMAB [Suspect]
     Active Substance: RITUXIMAB
  3. ETOPOSIDE [Suspect]
     Active Substance: ETOPOSIDE
  4. PREDNISOLONE [Suspect]
     Active Substance: PREDNISOLONE
  5. VINCRISTINE [Suspect]
     Active Substance: VINCRISTINE
  6. CYCLOPHOSPHAMIDE [Suspect]
     Active Substance: CYCLOPHOSPHAMIDE
  7. DOXORUBICIN [Suspect]
     Active Substance: DOXORUBICIN
  8. NEULASTA [Concomitant]
     Active Substance: PEGFILGRASTIM
  9. BACTRIM [Concomitant]
     Active Substance: SULFAMETHOXAZOLE\TRIMETHOPRIM
  10. ACYCLOVIR [Concomitant]
     Active Substance: ACYCLOVIR
  11. Econozaole nitrate cream [Concomitant]
  12. clotrimazole oral [Concomitant]
  13. Lidocaine solution [Concomitant]
  14. TESTOSTERONE [Concomitant]
     Active Substance: TESTOSTERONE
  15. LEVOTHYROXINE [Concomitant]
     Active Substance: LEVOTHYROXINE
  16. LINZESS [Concomitant]
     Active Substance: LINACLOTIDE
  17. LOSARTAN [Concomitant]
     Active Substance: LOSARTAN
  18. METFORMIN [Concomitant]
     Active Substance: METFORMIN HYDROCHLORIDE
  19. SULFASALAZINE [Concomitant]
     Active Substance: SULFASALAZINE
  20. CABERGOLINE [Concomitant]
     Active Substance: CABERGOLINE
  21. JARDIANCE [Concomitant]
     Active Substance: EMPAGLIFLOZIN
  22. PREDNISOLONE [Concomitant]
     Active Substance: PREDNISOLONE
  23. VITAMIN D [Concomitant]
     Active Substance: VITAMIN D NOS
  24. BISACODYL [Concomitant]
     Active Substance: BISACODYL
  25. ATORVASTATIN [Concomitant]
     Active Substance: ATORVASTATIN
  26. AMLODIPINE BESYLATE [Concomitant]
     Active Substance: AMLODIPINE BESYLATE
  27. SULFASALAZINE [Concomitant]
     Active Substance: SULFASALAZINE
  28. Bisacodyl Glimepride [Concomitant]
  29. TYLENOL [Concomitant]
     Active Substance: ACETAMINOPHEN
  30. ASPIRIN [Concomitant]
     Active Substance: ASPIRIN
  31. MIRALAX [Concomitant]
     Active Substance: POLYETHYLENE GLYCOL 3350
  32. IRON [Concomitant]
     Active Substance: IRON
  33. B12 [Concomitant]
  34. CLARITIN [Concomitant]
     Active Substance: LORATADINE

REACTIONS (5)
  - Balance disorder [None]
  - Fall [None]
  - Contusion [None]
  - Haemarthrosis [None]
  - Epistaxis [None]

NARRATIVE: CASE EVENT DATE: 20250101
